FAERS Safety Report 7012397-7 (Version None)
Quarter: 2010Q3

REPORT INFORMATION
  Report Type: 
  Country: None (occurrence: None)
  Receive Date: 20100924
  Receipt Date: 20100917
  Transmission Date: 20110219
  Serious: Yes (Hospitalization)
  Sender: FDA-Public Use
  Company Number: US-PURDUE-GBR-2010-0006654

PATIENT
  Age: 61 Year
  Sex: Female

DRUGS (3)
  1. DILAUDID-HP [Suspect]
     Dosage: 2.6 MG, DAILY
     Route: 037
  2. DILAUDID-HP [Suspect]
     Dosage: 1.8 MG, DAILY
     Route: 037
  3. DILAUDID-HP [Suspect]
     Dosage: 1 MG, DAILY
     Route: 037

REACTIONS (2)
  - CELLULITIS [None]
  - OEDEMA PERIPHERAL [None]
